FAERS Safety Report 18639430 (Version 1)
Quarter: 2020Q4

REPORT INFORMATION
  Report Type: Spontaneous
  Country: GB (occurrence: GB)
  Receive Date: 20201219
  Receipt Date: 20201219
  Transmission Date: 20210114
  Serious: Yes (Death, Hospitalization)
  Sender: FDA-Public Use
  Company Number: GB-009507513-2012GBR008642

PATIENT
  Age: 51 Year
  Sex: Male
  Weight: 99.3 kg

DRUGS (2)
  1. PEMBROLIZUMAB. [Suspect]
     Active Substance: PEMBROLIZUMAB
     Indication: MALIGNANT MELANOMA STAGE III
     Route: 042
     Dates: start: 20200820, end: 20200918
  2. CLOZAPINE. [Concomitant]
     Active Substance: CLOZAPINE

REACTIONS (11)
  - Fatigue [Unknown]
  - Hypoxia [Not Recovered/Not Resolved]
  - Pneumonitis [Fatal]
  - Autoimmune neutropenia [Not Recovered/Not Resolved]
  - Agitation [Not Recovered/Not Resolved]
  - Oesophagitis [Not Recovered/Not Resolved]
  - Pulmonary haemorrhage [Not Recovered/Not Resolved]
  - Pyrexia [Not Recovered/Not Resolved]
  - Dyspnoea [Not Recovered/Not Resolved]
  - C-reactive protein increased [Unknown]
  - Colitis [Not Recovered/Not Resolved]

NARRATIVE: CASE EVENT DATE: 20200918
